FAERS Safety Report 6461861-8 (Version None)
Quarter: 2009Q4

REPORT INFORMATION
  Report Type: 
  Country: None (occurrence: None)
  Receive Date: 20091130
  Receipt Date: 20091118
  Transmission Date: 20100525
  Serious: Yes (Hospitalization)
  Sender: FDA-Public Use
  Company Number: PHHY2009BR50848

PATIENT
  Sex: Female

DRUGS (2)
  1. ACLASTA [Suspect]
     Indication: OSTEOPOROSIS
     Dosage: UNK
     Dates: start: 20091112
  2. OS-CAL D [Concomitant]
     Dosage: 1 TABLET DAILY
     Dates: start: 20091105

REACTIONS (11)
  - ABDOMINAL PAIN UPPER [None]
  - CHILLS [None]
  - DRY MOUTH [None]
  - FATIGUE [None]
  - HEADACHE [None]
  - HYPERSENSITIVITY [None]
  - MYALGIA [None]
  - NAUSEA [None]
  - RETCHING [None]
  - URTICARIA [None]
  - VOMITING [None]
